FAERS Safety Report 5199732-X (Version None)
Quarter: 2007Q1

REPORT INFORMATION
  Report Type: 
  Country: None (occurrence: None)
  Receive Date: 20070103
  Receipt Date: 20070103
  Transmission Date: 20070707
  Serious: No
  Sender: FDA-Public Use
  Company Number: None

PATIENT
  Age: 86 Year
  Sex: Female
  Weight: 63.5036 kg

DRUGS (1)
  1. CITRACAL ULTRADENSE          MISSION PHARMACAL  SAN ANTONIO TX [Suspect]
     Indication: OSTEOPOROSIS
     Dosage: 1 TAB  TWICE DAILY  PO
     Route: 048
     Dates: start: 20061214, end: 20061215

REACTIONS (6)
  - DISCOMFORT [None]
  - DYSPHAGIA [None]
  - FOREIGN BODY TRAUMA [None]
  - MEDICATION ERROR [None]
  - PANIC REACTION [None]
  - PHARMACEUTICAL PRODUCT COMPLAINT [None]
